FAERS Safety Report 4674429-0 (Version None)
Quarter: 2005Q2

REPORT INFORMATION
  Report Type: 
  Country: None (occurrence: None)
  Receive Date: 20050524
  Receipt Date: 20050510
  Transmission Date: 20051028
  Serious: Yes (Death)
  Sender: FDA-Public Use
  Company Number: USA050496236

PATIENT
  Age: 78 Year
  Sex: Male
  Weight: 73 kg

DRUGS (4)
  1. CYMBALTA [Suspect]
     Indication: DIABETIC NEUROPATHY
     Dosage: 180 MG DAY
     Dates: start: 20041029, end: 20050401
  2. CYMBALTA [Suspect]
     Indication: PAIN
     Dosage: 180 MG DAY
     Dates: start: 20041029, end: 20050401
  3. SEROQUEL [Concomitant]
  4. RITALIN [Concomitant]

REACTIONS (1)
  - CARDIAC ARREST [None]
